FAERS Safety Report 15360635 (Version 1)
Quarter: 2018Q3

REPORT INFORMATION
  Report Type: Spontaneous
  Country: US (occurrence: US)
  Receive Date: 20180907
  Receipt Date: 20180907
  Transmission Date: 20181010
  Serious: Yes (Hospitalization)
  Sender: FDA-Public Use
  Company Number: US-VERTEX PHARMACEUTICALS-2018-004111

PATIENT
  Age: 16 Year
  Sex: Female

DRUGS (20)
  1. GLUCAGON. [Concomitant]
     Active Substance: GLUCAGON
  2. METHYLPHENIDATE. [Concomitant]
     Active Substance: METHYLPHENIDATE
  3. RISPERIDONE. [Concomitant]
     Active Substance: RISPERIDONE
  4. ADVAIR HFA [Concomitant]
     Active Substance: FLUTICASONE PROPIONATE\SALMETEROL XINAFOATE
  5. PULMOZYME [Concomitant]
     Active Substance: DORNASE ALFA
  6. POLYETHYLENE GLYCOL 3350. [Concomitant]
     Active Substance: POLYETHYLENE GLYCOL 3350
  7. CAYSTON [Concomitant]
     Active Substance: AZTREONAM
  8. ONDANSETRON [Concomitant]
     Active Substance: ONDANSETRON
  9. AZITHROMYCIN ANHYDROUS. [Concomitant]
     Active Substance: AZITHROMYCIN ANHYDROUS
  10. SERTRALINE [Concomitant]
     Active Substance: SERTRALINE HYDROCHLORIDE
  11. KITABIS PAK [Concomitant]
     Active Substance: TOBRAMYCIN
  12. CYPROHEPTADINE HCL [Concomitant]
     Active Substance: CYPROHEPTADINE HYDROCHLORIDE
  13. MONTELUKAST [Concomitant]
     Active Substance: MONTELUKAST SODIUM
  14. HUMALOG [Concomitant]
     Active Substance: INSULIN LISPRO
  15. ZENPEP [Concomitant]
     Active Substance: PANCRELIPASE AMYLASE\PANCRELIPASE LIPASE\PANCRELIPASE PROTEASE
  16. VITAMIN D3 [Concomitant]
     Active Substance: CHOLECALCIFEROL
  17. VITAMIN E                          /00110501/ [Concomitant]
     Active Substance: TOCOPHEROL
  18. SYMDEKO [Suspect]
     Active Substance: IVACAFTOR\TEZACAFTOR
     Indication: CYSTIC FIBROSIS
     Dosage: 1 YELLOW TABLET (TEZACAFTOR 100MG /IVACAFTOR 150MG) AM AND 1 BLUE TABLET (IVACAFTOR 150MG) PM
     Route: 048
     Dates: start: 201803
  19. VENTOLIN HFA [Concomitant]
     Active Substance: ALBUTEROL SULFATE
  20. MIRTAZAPINE. [Concomitant]
     Active Substance: MIRTAZAPINE

REACTIONS (1)
  - Infective pulmonary exacerbation of cystic fibrosis [Recovered/Resolved]

NARRATIVE: CASE EVENT DATE: 201804
